FAERS Safety Report 20363423 (Version 3)
Quarter: 2022Q3

REPORT INFORMATION
  Report Type: Spontaneous
  Country: BR (occurrence: BR)
  Receive Date: 20220121
  Receipt Date: 20220729
  Transmission Date: 20221026
  Serious: Yes (Other)
  Sender: FDA-Public Use
  Company Number: BR-BIOMARINAP-BR-2022-140913

PATIENT

DRUGS (5)
  1. LARONIDASE [Suspect]
     Active Substance: LARONIDASE
     Indication: Mucopolysaccharidosis I
     Dosage: 4 DF, QW
     Route: 042
     Dates: start: 20130101
  2. LARONIDASE [Suspect]
     Active Substance: LARONIDASE
     Dosage: QOW
     Route: 042
     Dates: start: 20210401, end: 2021
  3. LARONIDASE [Suspect]
     Active Substance: LARONIDASE
     Dosage: 4 DF, QW
     Route: 042
     Dates: start: 2021, end: 20211206
  4. LARONIDASE [Suspect]
     Active Substance: LARONIDASE
     Dosage: 4 DF, QW
     Route: 042
  5. CEFACLOR [Concomitant]
     Active Substance: CEFACLOR
     Indication: Product used for unknown indication

REACTIONS (9)
  - Immunodeficiency [Recovering/Resolving]
  - Drug hypersensitivity [Recovering/Resolving]
  - Erythema [Recovering/Resolving]
  - Rash macular [Recovering/Resolving]
  - Influenza [Recovering/Resolving]
  - Cough [Recovering/Resolving]
  - Chest discomfort [Recovering/Resolving]
  - Nasopharyngitis [Recovering/Resolving]
  - Product use issue [Unknown]

NARRATIVE: CASE EVENT DATE: 20210401
